FAERS Safety Report 4424019-X (Version None)
Quarter: 2004Q3

REPORT INFORMATION
  Report Type: 
  Country: None (occurrence: None)
  Receive Date: 20040812
  Receipt Date: 20040720
  Transmission Date: 20050211
  Serious: Yes (Hospitalization, Other)
  Sender: FDA-Public Use
  Company Number: DE-BRISTOL-MYERS SQUIBB COMPANY-12645461

PATIENT
  Age: 68 Year
  Sex: Male
  Weight: 76 kg

DRUGS (2)
  1. TAXOL [Suspect]
     Indication: NON-SMALL CELL LUNG CANCER
     Route: 042
     Dates: start: 20040714, end: 20040714
  2. CARBOPLATIN [Suspect]
     Indication: NON-SMALL CELL LUNG CANCER
     Route: 042
     Dates: start: 20040714, end: 20040714

REACTIONS (2)
  - CIRCULATORY COLLAPSE [None]
  - MUSCULAR WEAKNESS [None]
